FAERS Safety Report 13591512 (Version 1)
Quarter: 2017Q2

REPORT INFORMATION
  Report Type: Spontaneous
  Country: ES (occurrence: ES)
  Receive Date: 20170530
  Receipt Date: 20170530
  Transmission Date: 20170830
  Serious: Yes (Other)
  Sender: FDA-Public Use
  Company Number: ES-TEVA-771375ISR

PATIENT
  Age: 53 Year
  Sex: Male

DRUGS (3)
  1. FENTANILO MATRIX RATIOPHARM 50 MCG [Suspect]
     Active Substance: FENTANYL
     Route: 003
     Dates: start: 2016, end: 201611
  2. QUETIAPINA 100 [Suspect]
     Active Substance: QUETIAPINE FUMARATE
     Dates: end: 2016
  3. SECALIP SUPRA [Suspect]
     Active Substance: FENOFIBRATE
     Dates: end: 2016

REACTIONS (6)
  - Fatigue [Not Recovered/Not Resolved]
  - Abdominal pain upper [Not Recovered/Not Resolved]
  - Local swelling [Not Recovered/Not Resolved]
  - Pain in extremity [Not Recovered/Not Resolved]
  - Peripheral swelling [Not Recovered/Not Resolved]
  - Urticaria [Not Recovered/Not Resolved]
